FAERS Safety Report 8429357-1 (Version None)
Quarter: 2012Q2

REPORT INFORMATION
  Report Type: 
  Country: None (occurrence: None)
  Receive Date: 20120612
  Receipt Date: 20120528
  Transmission Date: 20120825
  Serious: Yes (Hospitalization)
  Sender: FDA-Public Use
  Company Number: JP-NOVOPROD-350427

PATIENT
  Age: 67 Year
  Sex: Female
  Weight: 44 kg

DRUGS (4)
  1. HUMALOG [Concomitant]
     Indication: TYPE 2 DIABETES MELLITUS
     Dosage: 16 U, QD
     Route: 058
  2. VICTOZA [Suspect]
     Indication: TYPE 2 DIABETES MELLITUS
     Dosage: 0.3 MG, QD
     Route: 058
     Dates: start: 20120419, end: 20120422
  3. NOVOLIN R [Concomitant]
     Indication: TYPE 2 DIABETES MELLITUS
     Dosage: 12 U, QD
     Route: 058
  4. CANDESARTAN CILEXETIL [Concomitant]
     Route: 048

REACTIONS (2)
  - DIABETIC HYPEROSMOLAR COMA [None]
  - ABDOMINAL DISCOMFORT [None]
